FAERS Safety Report 7692816-3 (Version None)
Quarter: 2011Q3

REPORT INFORMATION
  Report Type: 
  Country: None (occurrence: None)
  Receive Date: 20110819
  Receipt Date: 20110808
  Transmission Date: 20111222
  Serious: Yes (Hospitalization, Other)
  Sender: FDA-Public Use
  Company Number: US-ELI_LILLY_AND_COMPANY-US201108003235

PATIENT
  Sex: Female

DRUGS (2)
  1. HUMULIN N [Suspect]
     Dosage: 10 U, EACH EVENING
     Dates: start: 19960101
  2. HUMULIN N [Suspect]
     Indication: DIABETES MELLITUS
     Dosage: 32 U, EACH MORNING
     Dates: start: 19960101

REACTIONS (3)
  - DRUG INEFFECTIVE [None]
  - SHOCK [None]
  - HOSPITALISATION [None]
